FAERS Safety Report 5458425-1 (Version None)
Quarter: 2007Q3

REPORT INFORMATION
  Report Type: 
  Country: None (occurrence: None)
  Receive Date: 20070919
  Receipt Date: 20070326
  Transmission Date: 20080115
  Serious: No
  Sender: FDA-Public Use
  Company Number: US-ASTRAZENECA-2007UW06092

PATIENT
  Sex: Male

DRUGS (3)
  1. SEROQUEL [Suspect]
     Indication: DEPRESSION
     Route: 048
  2. SEROQUEL [Suspect]
     Route: 048
  3. LEXAPRO [Concomitant]

REACTIONS (4)
  - EUPHORIC MOOD [None]
  - FATIGUE [None]
  - MALAISE [None]
  - OCULAR HYPERAEMIA [None]
